FAERS Safety Report 22177351 (Version 1)
Quarter: 2023Q2

REPORT INFORMATION
  Report Type: Spontaneous
  Country: DE (occurrence: DE)
  Receive Date: 20230405
  Receipt Date: 20230405
  Transmission Date: 20230721
  Serious: Yes (Hospitalization)
  Sender: FDA-Public Use
  Company Number: DE-CHEMOCENTRYX, INC.-2023DECCXI0854

PATIENT

DRUGS (13)
  1. TAVNEOS [Suspect]
     Active Substance: AVACOPAN
     Indication: Microscopic polyangiitis
     Dosage: 60 MG (30 MG,2 IN 1 D)
     Route: 048
     Dates: start: 20230208, end: 202302
  2. TAVNEOS [Suspect]
     Active Substance: AVACOPAN
     Dosage: 20 MG (10 MG,2 IN 1 D)
     Route: 048
     Dates: start: 202302, end: 202302
  3. TAVNEOS [Suspect]
     Active Substance: AVACOPAN
     Dosage: 20 MG (10 MG,2 IN 1 D)
     Route: 048
     Dates: start: 202302, end: 20230222
  4. SULFAMETHOXAZOLE\TRIMETHOPRIM [Concomitant]
     Active Substance: SULFAMETHOXAZOLE\TRIMETHOPRIM
     Indication: Product used for unknown indication
     Dosage: MONDAY/WEDNESDAY/FRIDAY 1 X (3 IN 1 WK)
     Route: 048
  5. PREDNISOLONE [Concomitant]
     Active Substance: PREDNISOLONE
     Indication: Product used for unknown indication
     Dosage: 40 MG (DAILY)
     Route: 048
  6. PREGABALIN [Concomitant]
     Active Substance: PREGABALIN
     Indication: Product used for unknown indication
     Dosage: 50 MG (25 MG,2 IN 1 D)
     Route: 048
  7. ATORVASTATIN [Concomitant]
     Active Substance: ATORVASTATIN
     Indication: Product used for unknown indication
     Dosage: 40 MG
     Route: 048
  8. CANDESARTAN [Concomitant]
     Active Substance: CANDESARTAN
     Indication: Product used for unknown indication
     Dosage: 8 MG (DAILY)
     Route: 048
  9. AMLODIPINE [Concomitant]
     Active Substance: AMLODIPINE BESYLATE
     Indication: Product used for unknown indication
     Dosage: 2.5 MG (DAILY)
     Route: 048
  10. METOPROLOL [Concomitant]
     Active Substance: METOPROLOL
     Indication: Product used for unknown indication
     Dosage: 95 MG (47.5 MG,2 IN 1 D)
     Route: 048
  11. APIXABAN [Concomitant]
     Active Substance: APIXABAN
     Indication: Product used for unknown indication
     Dosage: 10 MG (5 MG,2 IN 1 D)
     Route: 048
  12. ESOMEPRAZOLE [Concomitant]
     Active Substance: ESOMEPRAZOLE
     Indication: Product used for unknown indication
     Dosage: 20 MG (20 MG,1 IN 1 D)
     Route: 048
  13. TORSEMIDE [Concomitant]
     Active Substance: TORSEMIDE
     Indication: Product used for unknown indication
     Dosage: 5 MG (5 MG,1 IN 1 D)
     Route: 048

REACTIONS (1)
  - Hepatic enzyme increased [Unknown]
